FAERS Safety Report 11265531 (Version 1)
Quarter: 2015Q3

REPORT INFORMATION
  Report Type: Spontaneous
  Country: US (occurrence: None)
  Receive Date: 20150710
  Receipt Date: 20150710
  Transmission Date: 20151125
  Serious: Yes (Other)
  Sender: FDA-Public Use
  Company Number: None

PATIENT
  Age: 23 Year
  Sex: Female
  Weight: 67.59 kg

DRUGS (2)
  1. VIMPAT [Concomitant]
     Active Substance: LACOSAMIDE
  2. VIMPAT [Suspect]
     Active Substance: LACOSAMIDE
     Dosage: YES
     Route: 048

REACTIONS (2)
  - Defaecation urgency [None]
  - Abdominal pain upper [None]
